FAERS Safety Report 19201131 (Version 1)
Quarter: 2021Q2

REPORT INFORMATION
  Report Type: Spontaneous
  Country: GR (occurrence: GR)
  Receive Date: 20210430
  Receipt Date: 20210430
  Transmission Date: 20210717
  Serious: Yes (Other)
  Sender: FDA-Public Use
  Company Number: GR-AMGEN-GRCNI2021060778

PATIENT
  Age: 76 Year
  Sex: Female
  Weight: 46 kg

DRUGS (9)
  1. PROLIA [Suspect]
     Active Substance: DENOSUMAB
     Indication: PRODUCT USED FOR UNKNOWN INDICATION
     Dosage: UNK
     Route: 065
     Dates: start: 20101030
  2. FULVESTRANT. [Suspect]
     Active Substance: FULVESTRANT
     Indication: HER2 POSITIVE BREAST CANCER
     Dosage: 250 MILLIGRAM, QD
     Route: 058
     Dates: start: 20170530, end: 20190313
  3. ATORVASTATIN [Concomitant]
     Active Substance: ATORVASTATIN
     Dosage: UNK
     Dates: start: 20181018
  4. EVISTA [Concomitant]
     Active Substance: RALOXIFENE HYDROCHLORIDE
     Dosage: UNK
  5. TRASTUZUMAB EMTANSINE [Suspect]
     Active Substance: ADO-TRASTUZUMAB EMTANSINE
     Indication: HER2 POSITIVE BREAST CANCER
     Dosage: 200 MILLIGRAM, Q3WK
     Route: 042
     Dates: start: 20190403
  6. PERTUZUMAB. [Suspect]
     Active Substance: PERTUZUMAB
     Indication: HER2 POSITIVE BREAST CANCER
     Dosage: 840 MILLIGRAM, Q3WK
     Route: 042
     Dates: start: 20170104
  7. TRASTUZUMAB. [Suspect]
     Active Substance: TRASTUZUMAB
     Indication: HER2 POSITIVE BREAST CANCER
     Dosage: 370 MILLIGRAM, Q3WK
     Route: 042
     Dates: start: 20170104
  8. DOCETAXEL. [Suspect]
     Active Substance: DOCETAXEL
     Indication: HER2 POSITIVE BREAST CANCER
     Dosage: 105 MILLIGRAM, Q3WK
     Route: 042
     Dates: start: 20170104, end: 20170419
  9. LAPATINIB [Suspect]
     Active Substance: LAPATINIB
     Indication: HER2 POSITIVE BREAST CANCER
     Dosage: 1000 MILLIGRAM, QD
     Route: 048
     Dates: start: 20191018

REACTIONS (7)
  - Off label use [Unknown]
  - Nail disorder [Not Recovered/Not Resolved]
  - Nausea [Recovered/Resolved]
  - Mitral valve incompetence [Not Recovered/Not Resolved]
  - Paronychia [Recovered/Resolved]
  - Peripheral sensory neuropathy [Not Recovered/Not Resolved]
  - Pruritus [Not Recovered/Not Resolved]

NARRATIVE: CASE EVENT DATE: 20170104
